FAERS Safety Report 9173981 (Version 1)
Quarter: 2013Q1

REPORT INFORMATION
  Report Type: Spontaneous
  Country: US (occurrence: US)
  Receive Date: 20130320
  Receipt Date: 20130320
  Transmission Date: 20140127
  Serious: No
  Sender: FDA-Public Use
  Company Number: US-PFIZER INC-2013091866

PATIENT
  Age: 41 Year
  Sex: Female
  Weight: 70.3 kg

DRUGS (1)
  1. CHANTIX [Suspect]
     Indication: SMOKING CESSATION THERAPY
     Dosage: 0.5MG DAILY
     Dates: start: 201303, end: 201303

REACTIONS (2)
  - Abnormal dreams [Recovered/Resolved]
  - Headache [Recovered/Resolved]
